FAERS Safety Report 19481016 (Version 2)
Quarter: 2021Q3

REPORT INFORMATION
  Report Type: Spontaneous
  Country: HR (occurrence: HR)
  Receive Date: 20210630
  Receipt Date: 20210702
  Transmission Date: 20211014
  Serious: Yes (Other)
  Sender: FDA-Public Use
  Company Number: HR-009507513-2106HRV006426

PATIENT
  Age: 61 Year
  Sex: Female

DRUGS (1)
  1. KEYTRUDA [Suspect]
     Active Substance: PEMBROLIZUMAB
     Indication: LUNG ADENOCARCINOMA
     Dosage: UNK
     Dates: start: 201908, end: 20210627

REACTIONS (7)
  - Papillary thyroid cancer [Recovered/Resolved]
  - Emphysema [Not Recovered/Not Resolved]
  - Neck mass [Recovered/Resolved]
  - Hypothyroidism [Unknown]
  - Thyroid calcification [Unknown]
  - Pulmonary mass [Recovered/Resolved]
  - Arteriosclerosis coronary artery [Unknown]

NARRATIVE: CASE EVENT DATE: 201909
